FAERS Safety Report 5542157-5 (Version None)
Quarter: 2007Q4

REPORT INFORMATION
  Report Type: 
  Country: None (occurrence: None)
  Receive Date: 20071210
  Receipt Date: 20071130
  Transmission Date: 20080405
  Serious: Yes (Life-Threatening, Hospitalization)
  Sender: FDA-Public Use
  Company Number: CO-JNJFOC-20071201026

PATIENT
  Age: 47 Year
  Sex: Female
  Weight: 48 kg

DRUGS (6)
  1. REMICADE [Suspect]
     Route: 042
  2. REMICADE [Suspect]
     Indication: RHEUMATOID ARTHRITIS
     Route: 042
  3. ARABA [Concomitant]
  4. METHOTREXATE [Concomitant]
  5. PREDNISOLONE [Concomitant]
  6. OMEPRAZOLE [Concomitant]

REACTIONS (9)
  - AUTOIMMUNE DISORDER [None]
  - COAGULOPATHY [None]
  - FUNGAL OESOPHAGITIS [None]
  - HEPATIC ENCEPHALOPATHY [None]
  - HEPATIC FAILURE [None]
  - HYPOPHOSPHATAEMIA [None]
  - LIVER DISORDER [None]
  - RESPIRATORY FAILURE [None]
  - THROMBOCYTOPENIA [None]
